FAERS Safety Report 21237438 (Version 11)
Quarter: 2024Q3

REPORT INFORMATION
  Report Type: Spontaneous
  Country: US (occurrence: US)
  Receive Date: 20220822
  Receipt Date: 20240806
  Transmission Date: 20241017
  Serious: Yes (Other)
  Sender: PFIZER
  Company Number: US-PFIZER INC-PV202200046202

PATIENT
  Age: 76 Year
  Sex: Female
  Weight: 53.515 kg

DRUGS (3)
  1. IBRANCE [Suspect]
     Active Substance: PALBOCICLIB
     Indication: Neoplasm malignant
     Dosage: 125 MG
  2. IBRANCE [Suspect]
     Active Substance: PALBOCICLIB
     Dosage: 75 MG, 1X/DAY
     Dates: start: 20230524
  3. IBRANCE [Suspect]
     Active Substance: PALBOCICLIB
     Dosage: 75MG FOR 21 DAYS ON 7 DAYS OFF

REACTIONS (9)
  - Second primary malignancy [Not Recovered/Not Resolved]
  - Skin cancer [Not Recovered/Not Resolved]
  - Solar lentigo [Not Recovered/Not Resolved]
  - Deafness [Unknown]
  - Hypoacusis [Unknown]
  - Nail disorder [Unknown]
  - Onychoclasis [Unknown]
  - Oral pain [Unknown]
  - Product prescribing error [Unknown]
